FAERS Safety Report 12278152 (Version 3)
Quarter: 2016Q2

REPORT INFORMATION
  Report Type: Spontaneous
  Country: CH (occurrence: CH)
  Receive Date: 20160418
  Receipt Date: 20160606
  Transmission Date: 20160815
  Serious: Yes (Hospitalization)
  Sender: FDA-Public Use
  Company Number: CH-LPDUSPRD-20160315

PATIENT
  Age: 53 Year
  Sex: Female

DRUGS (3)
  1. FERINJECT [Suspect]
     Active Substance: FERRIC CARBOXYMALTOSE
     Dosage: 200 MG 4 X AND 100 MG 1X
     Route: 041
     Dates: start: 2015, end: 2015
  2. TRIPTAN [Concomitant]
     Dosage: DOSE UNKNOWN
     Route: 065
  3. OESTROGEL [Concomitant]
     Active Substance: ESTRADIOL
     Dosage: 2-3 MEASURES
     Route: 065
     Dates: start: 201602

REACTIONS (33)
  - Incontinence [Unknown]
  - Dysstasia [Unknown]
  - Muscle spasms [Unknown]
  - Heart rate irregular [Unknown]
  - Hyperparathyroidism [Unknown]
  - Menorrhagia [Unknown]
  - Duodenitis [Unknown]
  - Uterine polyp [Unknown]
  - Tinnitus [Unknown]
  - Palpitations [Unknown]
  - Malaise [Unknown]
  - Micturition urgency [Unknown]
  - Rhinorrhoea [Unknown]
  - Hypophosphataemia [Unknown]
  - Nausea [Unknown]
  - Gastrointestinal haemorrhage [Unknown]
  - Gastric ulcer [Unknown]
  - Dissociative disorder [Unknown]
  - Disturbance in attention [Unknown]
  - Asthenia [Unknown]
  - Terminal insomnia [Unknown]
  - Myalgia [Unknown]
  - Pain [Unknown]
  - Tendon disorder [Unknown]
  - Vitamin D deficiency [Unknown]
  - Menometrorrhagia [Unknown]
  - Pain in extremity [Unknown]
  - Musculoskeletal stiffness [Unknown]
  - Osteoarthritis [Unknown]
  - Gastritis [Unknown]
  - Joint effusion [Unknown]
  - Head discomfort [Unknown]
  - Mobility decreased [Unknown]

NARRATIVE: CASE EVENT DATE: 2016
